FAERS Safety Report 9046282 (Version 1)
Quarter: 2013Q1

REPORT INFORMATION
  Report Type: Spontaneous
  Country: US (occurrence: US)
  Receive Date: 20130201
  Receipt Date: 20130201
  Transmission Date: 20140127
  Serious: No
  Sender: FDA-Public Use
  Company Number: US-009507513-1302USA000084

PATIENT
  Sex: Female

DRUGS (13)
  1. VICTRELIS [Suspect]
     Dosage: 200 MG 4 CAPSULES WITH FOOD, Q8H
     Route: 048
  2. RIBAVIRIN [Suspect]
  3. PEGASYS [Suspect]
     Dosage: 180 MCG/M
  4. LYRICA [Concomitant]
  5. ONDANSETRON [Concomitant]
  6. POLYETHYLENE GLYCOL [Concomitant]
     Dosage: 3350 NF
  7. AMRIX [Concomitant]
  8. HYDROCHLOROT [Concomitant]
  9. ALAVERT [Concomitant]
  10. SENNA [Concomitant]
  11. VITAMIN D (UNSPECIFIED) [Concomitant]
     Dosage: 1000 UNIT
  12. COLACE [Concomitant]
  13. XODOL [Concomitant]
     Dosage: 5-300 MG

REACTIONS (7)
  - Dyspnoea [Unknown]
  - Fatigue [Unknown]
  - Nausea [Unknown]
  - Vomiting [Unknown]
  - Headache [Unknown]
  - Depression [Unknown]
  - Dizziness [Unknown]
